FAERS Safety Report 5528504-9 (Version None)
Quarter: 2007Q4

REPORT INFORMATION
  Report Type: 
  Country: None (occurrence: None)
  Receive Date: 20071128
  Receipt Date: 20071126
  Transmission Date: 20080405
  Serious: Yes (Hospitalization)
  Sender: FDA-Public Use
  Company Number: FR-MERCK-0707FRA00069

PATIENT
  Age: 74 Year
  Sex: Female

DRUGS (10)
  1. VYTORIN [Suspect]
     Indication: DYSLIPIDAEMIA
     Route: 048
     Dates: start: 20060101
  2. ASPIRIN LYSINE [Suspect]
     Indication: CARDIOVASCULAR EVENT PROPHYLAXIS
     Route: 048
     Dates: start: 20060101
  3. POTASSIUM CHLORIDE [Suspect]
     Route: 048
  4. CLOPIDOGREL BISULFATE [Suspect]
     Indication: CARDIOVASCULAR EVENT PROPHYLAXIS
     Route: 048
     Dates: start: 20060101
  5. BISOPROLOL FUMARATE [Suspect]
     Route: 048
     Dates: start: 20060101
  6. CANDESARTAN CILEXETIL [Suspect]
     Indication: HYPERTENSION
     Route: 048
     Dates: start: 20060101
  7. FUROSEMIDE [Suspect]
     Route: 048
     Dates: start: 20060101
  8. OMEPRAZOLE [Suspect]
     Route: 048
     Dates: start: 20060101
  9. MOLSIDOMINE [Concomitant]
     Route: 048
     Dates: start: 20060101
  10. DOMPERIDONE [Concomitant]
     Route: 048
     Dates: start: 20060101

REACTIONS (1)
  - APHTHOUS STOMATITIS [None]
